FAERS Safety Report 9934814 (Version 2)
Quarter: 2014Q1

REPORT INFORMATION
  Report Type: Spontaneous
  Country: SK (occurrence: SK)
  Receive Date: 20140228
  Receipt Date: 20140306
  Transmission Date: 20141002
  Serious: Yes (Hospitalization)
  Sender: FDA-Public Use
  Company Number: PHHY2014SK019777

PATIENT
  Age: 6 Year
  Sex: Female
  Weight: 20 kg

DRUGS (2)
  1. DEGAN [Suspect]
     Indication: CAMPYLOBACTER GASTROENTERITIS
     Dosage: 0.8 ML
     Route: 030
     Dates: start: 20130829
  2. XYZAL [Concomitant]
     Dosage: 2.5 ML, BID

REACTIONS (5)
  - Extensor plantar response [Recovering/Resolving]
  - Gait disturbance [Recovering/Resolving]
  - Pain in extremity [Recovering/Resolving]
  - Hypokinesia [Recovering/Resolving]
  - Dystonia [Recovering/Resolving]
